FAERS Safety Report 13727566 (Version 1)
Quarter: 2017Q3

REPORT INFORMATION
  Report Type: Spontaneous
  Country: ES (occurrence: ES)
  Receive Date: 20170706
  Receipt Date: 20170706
  Transmission Date: 20171127
  Serious: Yes (Other)
  Sender: FDA-Public Use
  Company Number: ES-MEDA-2017060072

PATIENT
  Age: 74 Year
  Sex: Female

DRUGS (20)
  1. FOLIC ACID. [Concomitant]
     Active Substance: FOLIC ACID
  2. INSULIN [Concomitant]
     Active Substance: INSULIN NOS
  3. RAMIPRIL. [Suspect]
     Active Substance: RAMIPRIL
  4. ACENOCOUMAROL [Suspect]
     Active Substance: ACENOCOUMAROL
  5. CLORAZEPIC ACID [Suspect]
     Active Substance: CLORAZEPIC ACID
  6. HYDROCHLOROTHIAZIDE. [Suspect]
     Active Substance: HYDROCHLOROTHIAZIDE
  7. PREDNISONE. [Suspect]
     Active Substance: PREDNISONE
     Route: 048
  8. CLOBETASOL [Suspect]
     Active Substance: CLOBETASOL
     Route: 061
  9. ENOXAPARIN [Suspect]
     Active Substance: ENOXAPARIN
  10. METHOTREXATE. [Suspect]
     Active Substance: METHOTREXATE
  11. DIGOXIN. [Suspect]
     Active Substance: DIGOXIN
  12. METHYLPREDNISOLONE ACEPONATE [Suspect]
     Active Substance: METHYLPREDNISOLONE ACEPONATE
     Route: 061
  13. BISOPROLOL [Suspect]
     Active Substance: BISOPROLOL
  14. FUROSEMIDE. [Suspect]
     Active Substance: FUROSEMIDE
  15. OMEPRAZOLE. [Suspect]
     Active Substance: OMEPRAZOLE
  16. METHOTREXATE. [Suspect]
     Active Substance: METHOTREXATE
  17. HYDROCORTISONE. [Suspect]
     Active Substance: HYDROCORTISONE
     Route: 061
  18. BISOPROLOL [Suspect]
     Active Substance: BISOPROLOL
  19. DILTIAZEM. [Suspect]
     Active Substance: DILTIAZEM
  20. ALPRAZOLAM. [Suspect]
     Active Substance: ALPRAZOLAM

REACTIONS (9)
  - Euphoric mood [Unknown]
  - Stupor [Unknown]
  - Drug interaction [Unknown]
  - Erythema [Recovering/Resolving]
  - Disorientation [Unknown]
  - Toxicity to various agents [Recovering/Resolving]
  - Condition aggravated [Recovering/Resolving]
  - Somnolence [Unknown]
  - Transaminases increased [Recovering/Resolving]
